FAERS Safety Report 6557752-4 (Version None)
Quarter: 2010Q1

REPORT INFORMATION
  Report Type: 
  Country: None (occurrence: None)
  Receive Date: 20100128
  Receipt Date: 20100128
  Transmission Date: 20100710
  Serious: No
  Sender: FDA-Public Use
  Company Number: None

PATIENT
  Age: 38 Year
  Sex: Female
  Weight: 81.1939 kg

DRUGS (2)
  1. CLONAZEPAM [Suspect]
     Indication: PANIC DISORDER
     Dosage: 1 MG ONCE QAM, ONCE 2P AND ONCE HS PO
     Route: 048
     Dates: start: 19920101, end: 19930101
  2. CLONAZEPAM [Suspect]
     Indication: PANIC DISORDER
     Dosage: 1 MG ONCE QAM, ONCE 2P AND ONCE HS PO
     Route: 048
     Dates: start: 20080101

REACTIONS (3)
  - CONFUSIONAL STATE [None]
  - NERVOUSNESS [None]
  - VOMITING [None]
